FAERS Safety Report 7811876-X (Version None)
Quarter: 2011Q4

REPORT INFORMATION
  Report Type: 
  Country: None (occurrence: None)
  Receive Date: 20111013
  Receipt Date: 20111003
  Transmission Date: 20120403
  Serious: Yes (Other)
  Sender: FDA-Public Use
  Company Number: PHEH2009US06627

PATIENT
  Sex: Female

DRUGS (4)
  1. CALCIUM CARBONATE [Concomitant]
     Dosage: UNK UKN, UNK
  2. RECLAST [Suspect]
     Route: 042
     Dates: start: 20090615
  3. RECLAST [Suspect]
     Route: 042
     Dates: start: 20110930
  4. VITAMIN D [Concomitant]
     Dosage: UNK UKN, UNK

REACTIONS (11)
  - ASTHENIA [None]
  - FALL [None]
  - HEADACHE [None]
  - ARTHRALGIA [None]
  - MUSCULAR WEAKNESS [None]
  - DIZZINESS [None]
  - PAIN IN EXTREMITY [None]
  - BACK PAIN [None]
  - ABDOMINAL DISCOMFORT [None]
  - INFLUENZA [None]
  - PAIN [None]
